FAERS Safety Report 8724764 (Version 2)
Quarter: 2012Q4

REPORT INFORMATION
  Report Type: 
  Country: KR (occurrence: KR)
  Receive Date: 20120815
  Receipt Date: 20120913
  Transmission Date: 20130627
  Serious: Yes (Hospitalization, Other)
  Sender: FDA-Public Use
  Company Number: KR-ELI_LILLY_AND_COMPANY-KR201208003806

PATIENT
  Age: 74 Year
  Sex: Male

DRUGS (1)
  1. HUMALOG 50% LISPRO, 50% NPL [Suspect]
     Indication: TYPE 2 DIABETES MELLITUS
     Dosage: 16 u, tid
     Route: 058
     Dates: start: 20120504

REACTIONS (5)
  - Escherichia sepsis [Recovering/Resolving]
  - Pyrexia [Recovering/Resolving]
  - Fall [Recovered/Resolved]
  - Decreased immune responsiveness [Unknown]
  - Body temperature increased [Recovered/Resolved]
